FAERS Safety Report 5762215-X (Version None)
Quarter: 2008Q2

REPORT INFORMATION
  Report Type: 
  Country: None (occurrence: None)
  Receive Date: 20080609
  Receipt Date: 20080602
  Transmission Date: 20081010
  Serious: Yes (Other)
  Sender: FDA-Public Use
  Company Number: US-WYE-H04334808

PATIENT
  Sex: Male
  Weight: 105.33 kg

DRUGS (1)
  1. TORISEL [Suspect]
     Indication: RENAL CANCER
     Route: 041
     Dates: start: 20080417, end: 20080417

REACTIONS (3)
  - COUGH [None]
  - ERYTHEMA [None]
  - FEELING ABNORMAL [None]
